FAERS Safety Report 24357905 (Version 1)
Quarter: 2024Q3

REPORT INFORMATION
  Report Type: Spontaneous
  Country: US (occurrence: None)
  Receive Date: 20240923
  Receipt Date: 20240923
  Transmission Date: 20241017
  Serious: Yes (Death)
  Sender: Public
  Company Number: None

PATIENT
  Age: 59 Year
  Sex: Male
  Weight: 95.85 kg

DRUGS (2)
  1. NITROGLYCERIN [Suspect]
     Active Substance: NITROGLYCERIN
     Indication: Myocardial infarction
     Dosage: OTHER QUANTITY : 10 INJECTION(S);?FREQUENCY : AS NEEDED;?
     Route: 042
     Dates: start: 20091206, end: 20091209
  2. BAYER ASPIRIN [Concomitant]
     Active Substance: ASPIRIN

REACTIONS (1)
  - Incorrect dose administered [None]

NARRATIVE: CASE EVENT DATE: 20091206
